FAERS Safety Report 17573144 (Version 7)
Quarter: 2021Q2

REPORT INFORMATION
  Report Type: Report from Study
  Country: CA (occurrence: CA)
  Receive Date: 20200323
  Receipt Date: 20210413
  Transmission Date: 20210716
  Serious: Yes (Other)
  Sender: FDA-Public Use
  Company Number: PHHY2019CA045508

PATIENT
  Age: 61 Year
  Sex: Female

DRUGS (9)
  1. ERELZI [Suspect]
     Active Substance: ETANERCEPT-SZZS
     Indication: PSORIATIC ARTHROPATHY
     Dosage: 50 MG, QW
     Route: 058
     Dates: start: 20210302
  2. COSENTYX [Suspect]
     Active Substance: SECUKINUMAB
     Indication: PSORIATIC ARTHROPATHY
     Dosage: 150 MG, QW (WEEKS 0, 1,2 AND 3)
     Route: 058
     Dates: start: 20190220
  3. COSENTYX [Suspect]
     Active Substance: SECUKINUMAB
     Dosage: 150 MG, QW
     Route: 058
     Dates: start: 20190313
  4. CELEBREX [Concomitant]
     Active Substance: CELECOXIB
     Indication: PRODUCT USED FOR UNKNOWN INDICATION
     Dosage: UNK
     Route: 048
  5. PREDNISONE. [Concomitant]
     Active Substance: PREDNISONE
     Indication: PRODUCT USED FOR UNKNOWN INDICATION
     Dosage: UNK, PRN
     Route: 048
  6. ARAVA [Concomitant]
     Active Substance: LEFLUNOMIDE
     Indication: PRODUCT USED FOR UNKNOWN INDICATION
     Dosage: UNK
     Route: 048
  7. COSENTYX [Suspect]
     Active Substance: SECUKINUMAB
     Dosage: 300 MG, QMO
     Route: 058
     Dates: start: 2019, end: 202009
  8. VOLTAREN [Concomitant]
     Active Substance: DICLOFENAC SODIUM
     Indication: PRODUCT USED FOR UNKNOWN INDICATION
     Dosage: UNK, PRN
     Route: 061
  9. TRAMACET [Concomitant]
     Active Substance: ACETAMINOPHEN\TRAMADOL
     Indication: PRODUCT USED FOR UNKNOWN INDICATION
     Dosage: UNK, PRN
     Route: 048
     Dates: start: 2013

REACTIONS (17)
  - Tongue abscess [Not Recovered/Not Resolved]
  - Joint effusion [Unknown]
  - Musculoskeletal stiffness [Unknown]
  - Arthralgia [Unknown]
  - Pustular psoriasis [Not Recovered/Not Resolved]
  - Ulcer [Unknown]
  - Abscess oral [Not Recovered/Not Resolved]
  - Wrong technique in device usage process [Unknown]
  - Glossitis [Unknown]
  - Psoriatic arthropathy [Unknown]
  - Gait disturbance [Unknown]
  - Alopecia [Unknown]
  - Mobility decreased [Unknown]
  - Joint swelling [Unknown]
  - Pain [Recovering/Resolving]
  - Incorrect dose administered [Unknown]
  - Wound [Unknown]

NARRATIVE: CASE EVENT DATE: 20190220
